FAERS Safety Report 7197490-0 (Version None)
Quarter: 2010Q4

REPORT INFORMATION
  Report Type: 
  Country: None (occurrence: None)
  Receive Date: 20101227
  Receipt Date: 20101214
  Transmission Date: 20110411
  Serious: Yes (Hospitalization, Other)
  Sender: FDA-Public Use
  Company Number: US-ELI_LILLY_AND_COMPANY-US201008000582

PATIENT
  Sex: Female
  Weight: 111.57 kg

DRUGS (23)
  1. FORTEO [Suspect]
     Indication: OSTEOPOROSIS
     Dosage: 20 UG, DAILY (1/D)
     Route: 058
     Dates: start: 20100526
  2. LEVOTHYROXINE [Concomitant]
  3. IRON [Concomitant]
  4. VENLAFAXINE [Concomitant]
  5. CYCLOBENZAPRINE [Concomitant]
  6. LASIX [Concomitant]
  7. COMPAZINE [Concomitant]
  8. SPIRONOLACTONE [Concomitant]
  9. AVANDIA [Concomitant]
  10. POTASSIUM [Concomitant]
  11. FOLIC ACID [Concomitant]
  12. GABAPENTIN [Concomitant]
  13. COLACE [Concomitant]
  14. BUSPAR [Concomitant]
  15. MAGNESIUM [Concomitant]
  16. COGENTIN [Concomitant]
  17. AMILORIDE HYDROCHLORIDE [Concomitant]
  18. ABILIFY [Concomitant]
  19. PREVACID [Concomitant]
  20. FENTANYL [Concomitant]
  21. DILAUDID [Concomitant]
     Dosage: 2 MG, AS NEEDED
  22. REGLAN [Concomitant]
  23. IBUPROFEN [Concomitant]

REACTIONS (10)
  - CELLULITIS [None]
  - ELECTROLYTE IMBALANCE [None]
  - HYPOKALAEMIA [None]
  - HYPOTHYROIDISM [None]
  - LYMPHOEDEMA [None]
  - MALABSORPTION [None]
  - MUSCLE SPASMS [None]
  - PATHOLOGICAL FRACTURE [None]
  - RENAL FAILURE [None]
  - VEIN DISORDER [None]
